FAERS Safety Report 20761456 (Version 3)
Quarter: 2022Q2

REPORT INFORMATION
  Report Type: Spontaneous
  Country: IT (occurrence: IT)
  Receive Date: 20220428
  Receipt Date: 20220519
  Transmission Date: 20220720
  Serious: Yes (Other)
  Sender: FDA-Public Use
  Company Number: IT-MLMSERVICE-20220413-3497994-1

PATIENT
  Age: 67 Year
  Sex: Male

DRUGS (2)
  1. OXALIPLATIN [Suspect]
     Active Substance: OXALIPLATIN
     Indication: Colon cancer
     Dosage: 1040 MILLIGRAM.8 CYCLE (130 MG DAY 1 EVERY 21 DAYS)
     Route: 065
  2. XELODA [Suspect]
     Active Substance: CAPECITABINE
     Indication: Colon cancer
     Dosage: 224000 MILLIGRAM/SQ. METER, 8 CYCLE (1000 MG/M^2/12H FOR 14 DAYS, EVERY 21 DAYS)
     Route: 048

REACTIONS (1)
  - Focal nodular hyperplasia [Not Recovered/Not Resolved]
